FAERS Safety Report 18683230 (Version 5)
Quarter: 2022Q1

REPORT INFORMATION
  Report Type: Spontaneous
  Country: NZ (occurrence: NZ)
  Receive Date: 20201230
  Receipt Date: 20220224
  Transmission Date: 20220424
  Serious: Yes (Other)
  Sender: FDA-Public Use
  Company Number: NZ-PFIZER INC-2020499453

PATIENT
  Sex: Female

DRUGS (1)
  1. ENBREL [Suspect]
     Active Substance: ETANERCEPT
     Dosage: UNK

REACTIONS (5)
  - Needle issue [Unknown]
  - Wrong technique in device usage process [Unknown]
  - Injury associated with device [Unknown]
  - Injection site haemorrhage [Unknown]
  - Injection site pain [Unknown]
